FAERS Safety Report 4495839-0 (Version None)
Quarter: 2004Q4

REPORT INFORMATION
  Report Type: 
  Country: None (occurrence: None)
  Receive Date: 20041108
  Receipt Date: 20041022
  Transmission Date: 20050328
  Serious: Yes (Other)
  Sender: FDA-Public Use
  Company Number: JP-GLAXOSMITHKLINE-B0349712A

PATIENT
  Age: 41 Year
  Sex: Male

DRUGS (5)
  1. ZANTAC [Suspect]
     Indication: GASTROINTESTINAL HAEMORRHAGE
     Dosage: 50MG TWICE PER DAY
     Route: 042
     Dates: start: 20041016, end: 20041019
  2. CEFOTIAM HYDROCHLORIDE [Concomitant]
     Route: 065
  3. FASUDIL HYDROCHLORIDE [Concomitant]
     Route: 042
  4. ALEVIATIN [Concomitant]
     Route: 065
  5. UNSPECIFIED DRUG [Concomitant]
     Route: 048

REACTIONS (3)
  - ALANINE AMINOTRANSFERASE INCREASED [None]
  - ASPARTATE AMINOTRANSFERASE INCREASED [None]
  - HEPATIC FUNCTION ABNORMAL [None]
